FAERS Safety Report 23751427 (Version 1)
Quarter: 2024Q2

REPORT INFORMATION
  Report Type: Spontaneous
  Country: NZ (occurrence: NZ)
  Receive Date: 20240417
  Receipt Date: 20240417
  Transmission Date: 20240716
  Serious: Yes (Death)
  Sender: FDA-Public Use
  Company Number: NZ-BAYER-2024A052047

PATIENT
  Age: 30 Year
  Sex: Female
  Weight: 89 kg

DRUGS (2)
  1. GADOBUTROL [Suspect]
     Active Substance: GADOBUTROL
     Indication: Blindness transient
     Dosage: 7.5 ML, ONCE
     Route: 042
  2. GADOBUTROL [Suspect]
     Active Substance: GADOBUTROL
     Indication: Magnetic resonance imaging

REACTIONS (4)
  - Throat tightness [Fatal]
  - Chest discomfort [Fatal]
  - Oropharyngeal discomfort [Fatal]
  - Chest discomfort [Fatal]

NARRATIVE: CASE EVENT DATE: 20240409
